FAERS Safety Report 15622592 (Version 2)
Quarter: 2018Q4

REPORT INFORMATION
  Report Type: Spontaneous
  Country: BR (occurrence: BR)
  Receive Date: 20181115
  Receipt Date: 20181126
  Transmission Date: 20190205
  Serious: Yes (Life-Threatening, Hospitalization, Other)
  Sender: FDA-Public Use
  Company Number: BR-PFIZER INC-2018366088

PATIENT
  Age: 83 Year
  Sex: Male

DRUGS (12)
  1. ADDERA D3 [Concomitant]
     Active Substance: CHOLECALCIFEROL
     Indication: VITAMIN D
     Dosage: 1000 IU, 1 TAB PER DAY
     Route: 048
  2. MILGAMMA /00089801/ [Concomitant]
     Indication: CEREBROVASCULAR ACCIDENT
     Dosage: 150 MG, 1 TAB PER DAY
     Route: 048
     Dates: start: 2015
  3. MESIDOX [Concomitant]
     Indication: PROSTATIC DISORDER
     Dosage: 4 MG, 1 TAB PER DAY
     Route: 048
  4. ULTIBRO BREEZHALER [Concomitant]
     Active Substance: GLYCOPYRRONIUM\INDACATEROL
     Indication: RESPIRATORY DISORDER
     Dosage: 100 MCG PLUS 50 MCG ONE APPLICATION PER DAY
     Route: 045
     Dates: start: 2011
  5. VANCOMYCIN [Suspect]
     Active Substance: VANCOMYCIN
     Indication: PNEUMOCYSTIS JIROVECII PNEUMONIA
     Dosage: UNK
     Route: 065
  6. MILGAMMA /00089801/ [Concomitant]
     Indication: ARTHRALGIA
     Dosage: UNK
     Route: 065
  7. ACCUVIT [Concomitant]
     Active Substance: VITAMINS
     Dosage: 1 TAB IN ALTERNATE DAY
     Route: 048
  8. RITMONORM [Concomitant]
     Active Substance: PROPAFENONE HYDROCHLORIDE
     Indication: HYPERTENSION
     Dosage: 300 MG, UNK (HALF TAB IN MORNING AND HALF TAB IN NIGHT)
     Route: 048
  9. EUTHYROX [Concomitant]
     Active Substance: LEVOTHYROXINE SODIUM
     Indication: THYROID DISORDER
     Dosage: 88 ?G, 1 TAB PER DAY
     Route: 048
  10. ELIQUIS [Suspect]
     Active Substance: APIXABAN
     Indication: CEREBROVASCULAR ACCIDENT PROPHYLAXIS
     Dosage: 5 MG, UNK
     Route: 065
     Dates: start: 201510, end: 2018
  11. ELIQUIS [Suspect]
     Active Substance: APIXABAN
     Dosage: 2.5 MG, BID
     Route: 065
     Dates: start: 20180905
  12. ETNA /08553901/ [Concomitant]
     Indication: CEREBROVASCULAR ACCIDENT
     Dosage: UNK
     Route: 048
     Dates: start: 2015

REACTIONS (11)
  - Asthenia [Recovered/Resolved]
  - Respiratory disorder [Recovered/Resolved]
  - Pneumocystis jirovecii pneumonia [Recovered/Resolved]
  - Dependence on oxygen therapy [Not Recovered/Not Resolved]
  - Skin necrosis [Recovered/Resolved]
  - Cardio-respiratory arrest [Recovered/Resolved]
  - Gallbladder injury [Recovered/Resolved]
  - Pleural effusion [Recovered/Resolved with Sequelae]
  - Arthritis bacterial [Recovered/Resolved]
  - Renal injury [Recovered/Resolved]
  - Cardiac disorder [Not Recovered/Not Resolved]

NARRATIVE: CASE EVENT DATE: 20180724
